FAERS Safety Report 23755077 (Version 3)
Quarter: 2024Q2

REPORT INFORMATION
  Report Type: Spontaneous
  Country: US (occurrence: None)
  Receive Date: 20240418
  Receipt Date: 20240515
  Transmission Date: 20240716
  Serious: No
  Sender: FDA-Public Use
  Company Number: 2024A084477

PATIENT
  Sex: Male

DRUGS (1)
  1. SYMBICORT [Suspect]
     Active Substance: BUDESONIDE\FORMOTEROL FUMARATE DIHYDRATE
     Dosage: 160/4.5 INHALER, UNKNOWN UNKNOWN
     Route: 055

REACTIONS (4)
  - Cough [Unknown]
  - Device use issue [Unknown]
  - Device malfunction [Unknown]
  - Wrong technique in product usage process [Unknown]
